FAERS Safety Report 4490518-8 (Version None)
Quarter: 2004Q4

REPORT INFORMATION
  Report Type: 
  Country: None (occurrence: None)
  Receive Date: 20041101
  Receipt Date: 20040716
  Transmission Date: 20050328
  Serious: Yes (Life-Threatening)
  Sender: FDA-Public Use
  Company Number: 2004SE04088

PATIENT
  Sex: Female

DRUGS (1)
  1. CRESTOR [Suspect]
     Dosage: 20 MG DAILY PO
     Route: 048

REACTIONS (3)
  - DELUSION [None]
  - MENTAL DISORDER [None]
  - SUICIDAL IDEATION [None]
